FAERS Safety Report 10866459 (Version 1)
Quarter: 2015Q1

REPORT INFORMATION
  Report Type: Spontaneous
  Country: US (occurrence: None)
  Receive Date: 20150220
  Receipt Date: 20150220
  Transmission Date: 20150721
  Serious: No
  Sender: FDA-Public Use
  Company Number: None

PATIENT
  Age: 29 Year
  Sex: Female
  Weight: 81.65 kg

DRUGS (4)
  1. BIRTH CONTROL PILL (GENERIC) [Concomitant]
  2. VENLAFAXINE 150MG GENERIC [Suspect]
     Active Substance: VENLAFAXINE HYDROCHLORIDE
     Indication: ANXIETY
     Dosage: 1 CAPSULE
     Route: 048
     Dates: start: 20141119, end: 20150219
  3. BUPROPION [Concomitant]
     Active Substance: BUPROPION
  4. VENLAFAXINE 150MG GENERIC [Suspect]
     Active Substance: VENLAFAXINE HYDROCHLORIDE
     Indication: DEPRESSION
     Dosage: 1 CAPSULE
     Route: 048
     Dates: start: 20141119, end: 20150219

REACTIONS (1)
  - Urine odour abnormal [None]

NARRATIVE: CASE EVENT DATE: 20150218
